FAERS Safety Report 7488986-2 (Version None)
Quarter: 2011Q2

REPORT INFORMATION
  Report Type: 
  Country: None (occurrence: None)
  Receive Date: 20110518
  Receipt Date: 20110516
  Transmission Date: 20111010
  Serious: Yes (Other)
  Sender: FDA-Public Use
  Company Number: JP-PFIZER INC-2011088188

PATIENT
  Age: 36 Year
  Sex: Female

DRUGS (6)
  1. ETHYL LOFLAZEPATE [Concomitant]
     Dosage: UNK
  2. ZOLOFT [Suspect]
     Dosage: 25 MG/DAY
     Route: 048
     Dates: start: 20110415
  3. MUCODYNE [Concomitant]
     Dosage: UNK
  4. LAC B [Concomitant]
     Dosage: UNK
  5. ASTOMIN [Concomitant]
     Dosage: UNK
  6. ZOLOFT [Suspect]
     Dosage: 50 MG DAILY
     Route: 048

REACTIONS (1)
  - HYPOACUSIS [None]
